FAERS Safety Report 4804529-3 (Version None)
Quarter: 2005Q4

REPORT INFORMATION
  Report Type: 
  Country: None (occurrence: None)
  Receive Date: 20051017
  Receipt Date: 20051004
  Transmission Date: 20060501
  Serious: Yes (Life-Threatening, Hospitalization)
  Sender: FDA-Public Use
  Company Number: GBWYE026304OCT05

PATIENT
  Age: 39 Year
  Sex: Female

DRUGS (5)
  1. LODINE [Suspect]
     Indication: ARTHRALGIA
     Dosage: 600 MG , ORAL
     Route: 048
     Dates: start: 20050821, end: 20050906
  2. VIGABATRIN (VIGABATRIN) [Concomitant]
  3. VALPROATE SODIUM [Concomitant]
  4. CLOBAZAM [Concomitant]
  5. KEPPRA [Concomitant]

REACTIONS (2)
  - CONDITION AGGRAVATED [None]
  - STATUS EPILEPTICUS [None]
